FAERS Safety Report 9595216 (Version 2)
Quarter: 2013Q4

REPORT INFORMATION
  Report Type: Spontaneous
  Country: US (occurrence: US)
  Receive Date: 20131004
  Receipt Date: 20131004
  Transmission Date: 20140711
  Serious: No
  Sender: FDA-Public Use
  Company Number: US-PURDUE-USA-2012-0093565

PATIENT
  Age: 81 Year
  Sex: Female
  Weight: 43.54 kg

DRUGS (8)
  1. BUTRANS [Suspect]
     Indication: SCOLIOSIS
     Dosage: 10 MCG, 1/WEEK
     Route: 062
     Dates: start: 201208, end: 20120905
  2. BUTRANS [Suspect]
     Indication: PAIN IN EXTREMITY
     Dosage: 20 MCG, 1/WEEK
     Route: 062
     Dates: start: 20120905
  3. LEVOXYL [Concomitant]
     Indication: PRODUCT USED FOR UNKNOWN INDICATION
     Dosage: 10 MG, UNK
  4. GAPENTIN [Concomitant]
     Indication: PRODUCT USED FOR UNKNOWN INDICATION
     Dosage: 600 MG, UNK
  5. SIMVASTATIN +PHARMA [Concomitant]
     Indication: PRODUCT USED FOR UNKNOWN INDICATION
     Dosage: 10 MG, UNK
  6. ASPIRIN [Concomitant]
     Indication: PRODUCT USED FOR UNKNOWN INDICATION
     Dosage: 81 MG, UNK
  7. CYMBALTA [Concomitant]
     Indication: PRODUCT USED FOR UNKNOWN INDICATION
     Dosage: 60 MG, UNK
  8. ZOLPIDEM TARTRATE [Concomitant]
     Indication: PRODUCT USED FOR UNKNOWN INDICATION
     Dosage: 10 MG, UNK

REACTIONS (4)
  - Application site discolouration [Unknown]
  - Application site pruritus [Recovered/Resolved]
  - Application site erythema [Recovered/Resolved]
  - Inadequate analgesia [Unknown]
